FAERS Safety Report 7514959-7 (Version None)
Quarter: 2011Q2

REPORT INFORMATION
  Report Type: 
  Country: None (occurrence: None)
  Receive Date: 20110601
  Receipt Date: 20110525
  Transmission Date: 20111010
  Serious: Yes (Death, Hospitalization)
  Sender: FDA-Public Use
  Company Number: IT-JNJFOC-20110512402

PATIENT
  Age: 79 Year
  Sex: Male

DRUGS (10)
  1. OMEPRAZOLE [Concomitant]
     Indication: PRODUCT USED FOR UNKNOWN INDICATION
     Route: 065
  2. TACHIDOL [Concomitant]
     Indication: PRODUCT USED FOR UNKNOWN INDICATION
     Route: 065
  3. ONCO-CARBIDE [Concomitant]
     Indication: MYELODYSPLASTIC SYNDROME
     Route: 065
  4. LEVOFLOXACIN [Suspect]
     Indication: BRONCHOPNEUMONIA
     Dosage: 1 UNIT/DAY
     Route: 048
     Dates: start: 20100502, end: 20100518
  5. POTASSIUM CHLORIDE [Concomitant]
     Indication: PRODUCT USED FOR UNKNOWN INDICATION
     Route: 065
  6. METRONIDAZOLE [Concomitant]
     Route: 065
     Dates: start: 20100518, end: 20100604
  7. UNASYN [Suspect]
     Indication: PANCREATITIS ACUTE
     Dosage: 3 UNITS/DAY
     Route: 042
     Dates: start: 20100418, end: 20100423
  8. PIPERACILLIN [Suspect]
     Indication: PANCREATITIS ACUTE
     Dosage: (4 MG/0.500 G POWDER), 2 UNITS/DAY
     Route: 042
     Dates: start: 20100424, end: 20100506
  9. ALLOPURINOL [Concomitant]
     Indication: PRODUCT USED FOR UNKNOWN INDICATION
     Route: 065
  10. PREMEDICATION [Concomitant]
     Route: 065

REACTIONS (2)
  - CLOSTRIDIUM DIFFICILE COLITIS [None]
  - DEATH [None]
